FAERS Safety Report 9355762 (Version 6)
Quarter: 2013Q4

REPORT INFORMATION
  Report Type: Report from Study
  Country: GB (occurrence: GB)
  Receive Date: 20130619
  Receipt Date: 20131206
  Transmission Date: 20140711
  Serious: Yes (Hospitalization)
  Sender: FDA-Public Use
  Company Number: GB-ROCHE-1236004

PATIENT
  Age: 45 Year
  Sex: Female
  Weight: 95.7 kg

DRUGS (4)
  1. TRASTUZUMAB EMTANSINE [Suspect]
     Indication: BREAST CANCER
     Dosage: LAST DOSE PRIOR TO ONSET OF LIVER CAPSULE PAIN: 05/JUN/2013
     Route: 042
     Dates: start: 20130605
  2. THYROXINE [Concomitant]
     Route: 065
     Dates: start: 2000
  3. FLUOXETINE [Concomitant]
     Route: 065
     Dates: start: 2003
  4. DEXAMETHASONE [Concomitant]
     Route: 065
     Dates: start: 20130603, end: 20130605

REACTIONS (1)
  - Hepatic pain [Recovered/Resolved]
